FAERS Safety Report 5571314-7 (Version None)
Quarter: 2007Q4

REPORT INFORMATION
  Report Type: 
  Country: None (occurrence: None)
  Receive Date: 20071221
  Receipt Date: 20070620
  Transmission Date: 20080405
  Serious: No
  Sender: FDA-Public Use
  Company Number: A0658957A

PATIENT
  Age: 75 Year
  Sex: Male

DRUGS (1)
  1. FLONASE [Suspect]
     Indication: NASAL DISORDER
     Dosage: 1SPR FOUR TIMES PER DAY
     Route: 045
     Dates: start: 20070619

REACTIONS (2)
  - INSOMNIA [None]
  - OVERDOSE [None]
